FAERS Safety Report 10640058 (Version 1)
Quarter: 2014Q4

REPORT INFORMATION
  Report Type: Spontaneous
  Country: US (occurrence: US)
  Receive Date: 20141209
  Receipt Date: 20141209
  Transmission Date: 20150529
  Serious: No
  Sender: FDA-Public Use
  Company Number: US-TEVA-433637USA

PATIENT
  Age: 59 Year
  Sex: Female

DRUGS (10)
  1. FOLIC ACID. [Concomitant]
     Active Substance: FOLIC ACID
  2. DICLOFENAC [Concomitant]
     Active Substance: DICLOFENAC
  3. CEFACLOR. [Suspect]
     Active Substance: CEFACLOR
  4. FUROSEMIDE. [Concomitant]
     Active Substance: FUROSEMIDE
  5. BENAZEPRIL HYDROCHLORIDE. [Concomitant]
     Active Substance: BENAZEPRIL HYDROCHLORIDE
  6. XELJANZ [Suspect]
     Active Substance: TOFACITINIB CITRATE
     Indication: RHEUMATOID ARTHRITIS
     Dosage: 10 MILLIGRAM DAILY;
     Route: 048
     Dates: start: 20130812
  7. METHOTREXATE [Concomitant]
     Active Substance: METHOTREXATE
  8. PARACETAMOL [Concomitant]
     Active Substance: ACETAMINOPHEN
  9. LORATADINE. [Concomitant]
     Active Substance: LORATADINE
     Dosage: REDITABS
  10. CARVEDILOL. [Concomitant]
     Active Substance: CARVEDILOL

REACTIONS (2)
  - Nasopharyngitis [Unknown]
  - Pyrexia [Unknown]

NARRATIVE: CASE EVENT DATE: 20130914
